FAERS Safety Report 5123652-X (Version None)
Quarter: 2006Q4

REPORT INFORMATION
  Report Type: 
  Country: None (occurrence: None)
  Receive Date: 20060910
  Receipt Date: 20060602
  Transmission Date: 20070319
  Serious: Yes (Other)
  Sender: FDA-Public Use
  Company Number: US_980910025

PATIENT
  Age: 57 Year
  Sex: Female
  Weight: 77.3 kg

DRUGS (10)
  1. HUMULIN L [Suspect]
     Indication: DRUG USE FOR UNKNOWN INDICATION
  2. HUMALOG [Suspect]
     Indication: DRUG USE FOR UNKNOWN INDICATION
     Dosage: SUBCUTANEOUS
     Route: 058
     Dates: start: 20040101
  3. ILETIN [Suspect]
     Indication: DRUG USE FOR UNKNOWN INDICATION
     Dosage: 30 U, DAILY (1/D) SUBCUTANEOUS
     Route: 058
  4. ILETIN [Suspect]
     Indication: DRUG USE FOR UNKNOWN INDICATION
     Dosage: AS NEEDED, SUBCUTANEOUS
     Route: 058
  5. ASPIRIN [Concomitant]
  6. PREMARIN [Concomitant]
  7. VITAMIN E [Concomitant]
  8. VITAIN C (VITAMIN C) [Concomitant]
  9. HUMALOG PEN (HUMALOG PEN) [Concomitant]
  10. HUMALOG [Suspect]

REACTIONS (4)
  - BLOOD GLUCOSE INCREASED [None]
  - CARDIAC DISORDER [None]
  - SHOCK [None]
  - VISUAL ACUITY REDUCED [None]
